FAERS Safety Report 8078931-3 (Version None)
Quarter: 2012Q1

REPORT INFORMATION
  Report Type: 
  Country: None (occurrence: None)
  Receive Date: 20120128
  Receipt Date: 20110525
  Transmission Date: 20120608
  Serious: No
  Sender: FDA-Public Use
  Company Number: US-ABBOTT-11P-163-0721646-00

PATIENT
  Age: 54 Year
  Sex: Male

DRUGS (10)
  1. HUMIRA [Suspect]
     Indication: PSORIASIS
     Dates: start: 20100101, end: 20110201
  2. METFFORMIN HYDROCHLORIDE [Concomitant]
     Indication: PRODUCT USED FOR UNKNOWN INDICATION
     Route: 048
  3. LIPITOR [Concomitant]
     Indication: PRODUCT USED FOR UNKNOWN INDICATION
     Route: 048
  4. ALPRAZOLAM [Concomitant]
     Indication: TENSION
     Dosage: AT BEDTIME
  5. TAMSULOSIN HCL [Concomitant]
     Indication: PRODUCT USED FOR UNKNOWN INDICATION
     Dosage: 0.4MG AT BEDTIME
     Route: 048
  6. LISINOPRIL [Concomitant]
     Indication: HYPERTENSION
     Dosage: 20MG DAILY
  7. GLIPIZIDE [Concomitant]
     Indication: PRODUCT USED FOR UNKNOWN INDICATION
     Route: 048
  8. LANTUS [Concomitant]
     Indication: DIABETES MELLITUS
     Dosage: 60 UNITS EVERY PM
  9. XANAX [Concomitant]
     Indication: ANXIETY
  10. ACETAMINOPHEN AND HYDROCODONE BITARTRATE [Concomitant]
     Indication: PAIN
     Dosage: 10/500MG PRN
     Route: 048

REACTIONS (18)
  - ACCIDENTAL OVERDOSE [None]
  - FATIGUE [None]
  - GAIT DISTURBANCE [None]
  - TINNITUS [None]
  - HEARING IMPAIRED [None]
  - ACCIDENT [None]
  - PAIN IN EXTREMITY [None]
  - DIZZINESS [None]
  - PSORIASIS [None]
  - ILL-DEFINED DISORDER [None]
  - IRITIS [None]
  - SINUS DISORDER [None]
  - DRUG INEFFECTIVE [None]
  - ASTHENIA [None]
  - RETCHING [None]
  - MEMORY IMPAIRMENT [None]
  - BACK PAIN [None]
  - NAUSEA [None]
